FAERS Safety Report 4957923-4 (Version None)
Quarter: 2006Q1

REPORT INFORMATION
  Report Type: 
  Country: None (occurrence: None)
  Receive Date: 20060324
  Receipt Date: 20060314
  Transmission Date: 20060701
  Serious: Yes (Hospitalization, Other)
  Sender: FDA-Public Use
  Company Number: 13744

PATIENT
  Age: 35 Year
  Sex: Female

DRUGS (6)
  1. METHOTREXATE [Suspect]
     Indication: ACUTE PROMYELOCYTIC LEUKAEMIA
     Dosage: 22.5 MG QD
     Dates: start: 20041027, end: 20041123
  2. METHOTREXATE [Suspect]
     Indication: ACUTE PROMYELOCYTIC LEUKAEMIA
     Dates: start: 20041130, end: 20050107
  3. ALL TRANS RETINOIC ACID (ATRA) [Suspect]
     Indication: ACUTE PROMYELOCYTIC LEUKAEMIA
  4. ALL TRANS RETINOIC ACID (ATRA) [Suspect]
     Indication: ACUTE PROMYELOCYTIC LEUKAEMIA
     Dosage: 70 MG QD PO
     Route: 048
     Dates: start: 20060114, end: 20060124
  5. MERCAPTOPURINE [Suspect]
     Indication: ACUTE PROMYELOCYTIC LEUKAEMIA
     Dosage: 75 MG QD
     Dates: start: 20041027, end: 20041128
  6. MERCAPTOPURINE [Suspect]
     Indication: ACUTE PROMYELOCYTIC LEUKAEMIA
     Dates: start: 20041029, end: 20050111

REACTIONS (7)
  - BLOOD LACTATE DEHYDROGENASE INCREASED [None]
  - CHLOROMA [None]
  - DISEASE PROGRESSION [None]
  - FIBRIN D DIMER INCREASED [None]
  - LEUKAEMIA RECURRENT [None]
  - MASTOIDITIS [None]
  - PROTHROMBIN TIME SHORTENED [None]
